FAERS Safety Report 25776682 (Version 1)
Quarter: 2025Q3

REPORT INFORMATION
  Report Type: Spontaneous
  Country: US (occurrence: US)
  Receive Date: 20250909
  Receipt Date: 20250909
  Transmission Date: 20251020
  Serious: No
  Sender: DOMPE FARMACEUTICI
  Company Number: US-FARMAPROD-202409-3153

PATIENT
  Age: 80 Year
  Sex: Female
  Weight: 73.48 kg

DRUGS (54)
  1. OXERVATE [Suspect]
     Active Substance: CENEGERMIN-BKBJ
     Indication: Neurotrophic keratopathy
     Route: 047
     Dates: start: 20240830
  2. PROLASTIN [Concomitant]
     Active Substance: .ALPHA.1-PROTEINASE INHIBITOR HUMAN
  3. PROBIOTICS NOS [Concomitant]
     Active Substance: PROBIOTICS NOS
  4. OXYGEN [Concomitant]
     Active Substance: OXYGEN
  5. METFORMIN HYDROCHLORIDE [Concomitant]
     Active Substance: METFORMIN HYDROCHLORIDE
  6. TIMOLOL MALEATE [Concomitant]
     Active Substance: TIMOLOL MALEATE
  7. SERTRALINE HYDROCHLORIDE [Concomitant]
     Active Substance: SERTRALINE HYDROCHLORIDE
  8. PRAVASTATIN SODIUM [Concomitant]
     Active Substance: PRAVASTATIN SODIUM
  9. ONDANSETRON HYDROCHLORIDE [Concomitant]
     Active Substance: ONDANSETRON HYDROCHLORIDE
  10. RHOPRESSA [Concomitant]
     Active Substance: NETARSUDIL MESYLATE
  11. MOXIFLOXACIN [Concomitant]
     Active Substance: MOXIFLOXACIN
  12. POLYETHYLENE GLYCOL 3350 [Concomitant]
     Active Substance: POLYETHYLENE GLYCOL 3350
  13. PANTOPRAZOLE SODIUM [Concomitant]
     Active Substance: PANTOPRAZOLE SODIUM
  14. METOPROLOL TARTRATE [Concomitant]
     Active Substance: METOPROLOL TARTRATE
  15. LEVOFLOXACIN [Concomitant]
     Active Substance: LEVOFLOXACIN
  16. LOTEMAX [Concomitant]
     Active Substance: LOTEPREDNOL ETABONATE
  17. LATANOPROST [Concomitant]
     Active Substance: LATANOPROST
  18. CODEINE-GUAIFENESIN [Concomitant]
     Active Substance: CODEINE PHOSPHATE\GUAIFENESIN
  19. AMOXICILLIN-ACID CLAVULANIC [Concomitant]
  20. RESTASIS [Concomitant]
     Active Substance: CYCLOSPORINE
  21. DOXYCYCLINE HYCLATE [Concomitant]
     Active Substance: DOXYCYCLINE HYCLATE
  22. AMITIZA [Concomitant]
     Active Substance: LUBIPROSTONE
  23. BOOSTRIX [Concomitant]
     Active Substance: TETANUS TOXOID, REDUCED DIPHTHERIA TOXOID AND ACELLULAR PERTUSSIS VACCINE ADSORBED, TDAP
  24. PROPRANOLOL HYDROCHLORIDE [Concomitant]
     Active Substance: PROPRANOLOL HYDROCHLORIDE
  25. ACETAMINOPHEN\HYDROCODONE [Concomitant]
     Active Substance: ACETAMINOPHEN\HYDROCODONE
  26. BREO ELLIPTA [Concomitant]
     Active Substance: FLUTICASONE FUROATE\VILANTEROL TRIFENATATE
  27. CLONAZEPAM [Concomitant]
     Active Substance: CLONAZEPAM
  28. NITROFURANTOIN MONOHYDRATE MACROCRYSTALS [Concomitant]
     Active Substance: NITROFURANTOIN\NITROFURANTOIN MONOHYDRATE
  29. ZTLIDO [Concomitant]
     Active Substance: LIDOCAINE
  30. CEFDINIR [Concomitant]
     Active Substance: CEFDINIR
  31. FAMOTIDINE [Concomitant]
     Active Substance: FAMOTIDINE
  32. TRULICITY [Concomitant]
     Active Substance: DULAGLUTIDE
  33. DICLOFENAC EPOLAMINE [Concomitant]
     Active Substance: DICLOFENAC EPOLAMINE
  34. GABAPENTIN [Concomitant]
     Active Substance: GABAPENTIN
  35. MELOXICAM [Concomitant]
     Active Substance: MELOXICAM
  36. CLOTRIMAZOLE [Concomitant]
     Active Substance: CLOTRIMAZOLE
  37. SERTRALINE HYDROCHLORIDE [Concomitant]
     Active Substance: SERTRALINE HYDROCHLORIDE
  38. CLONAZEPAM [Concomitant]
     Active Substance: CLONAZEPAM
  39. FLUCONAZOLE [Concomitant]
     Active Substance: FLUCONAZOLE
  40. LUBIPROSTONE [Concomitant]
     Active Substance: LUBIPROSTONE
  41. LEVOTHYROXINE SODIUM [Concomitant]
     Active Substance: LEVOTHYROXINE SODIUM
  42. IRBESARTAN [Concomitant]
     Active Substance: IRBESARTAN
  43. CYCLOSPORINE [Concomitant]
     Active Substance: CYCLOSPORINE
  44. PRAMIPEXOLE DIHYDROCHLORIDE [Concomitant]
     Active Substance: PRAMIPEXOLE DIHYDROCHLORIDE
  45. MONTELUKAST SODIUM [Concomitant]
     Active Substance: MONTELUKAST SODIUM
  46. TRIAMCINOLONE ACETONIDE [Concomitant]
     Active Substance: TRIAMCINOLONE ACETONIDE
  47. AMITIZA [Concomitant]
     Active Substance: LUBIPROSTONE
  48. ALBUTEROL SULFATE [Concomitant]
     Active Substance: ALBUTEROL SULFATE
  49. SUCRALFATE [Concomitant]
     Active Substance: SUCRALFATE
  50. PREDNISONE [Concomitant]
     Active Substance: PREDNISONE
  51. SYNTHROID [Concomitant]
     Active Substance: LEVOTHYROXINE SODIUM
  52. LANSOPRAZOLE [Concomitant]
     Active Substance: LANSOPRAZOLE
  53. AMOXICILLIN [Concomitant]
     Active Substance: AMOXICILLIN
  54. ACID REDUCER [Concomitant]

REACTIONS (4)
  - Product dose omission issue [Unknown]
  - Eye pain [Not Recovered/Not Resolved]
  - Headache [Unknown]
  - Vision blurred [Unknown]

NARRATIVE: CASE EVENT DATE: 20240902
